FAERS Safety Report 10270386 (Version 1)
Quarter: 2014Q2

REPORT INFORMATION
  Report Type: Spontaneous
  Country: IT (occurrence: None)
  Receive Date: 20140626
  Receipt Date: 20140626
  Transmission Date: 20141212
  Serious: Yes (Hospitalization)
  Sender: FDA-Public Use
  Company Number: NL01PV14.36199

PATIENT
  Age: 58 Year
  Sex: Female

DRUGS (13)
  1. ZOLPIDEM [Suspect]
     Indication: INSOMNIA
     Route: 048
     Dates: start: 20140505, end: 20140505
  2. ALLOPURINOL [Suspect]
     Dates: start: 20140405
  3. SIMVASTATIN [Concomitant]
  4. CARDICOR [Concomitant]
  5. CACIT [Concomitant]
  6. NORVASC (AMLODIPINE BESILATE) [Concomitant]
  7. TOP-NITRO [Concomitant]
  8. MONOKET [Concomitant]
  9. FUROSEMIDE [Concomitant]
  10. PEPTAZOL [Concomitant]
  11. CARDIOASPIRIN (ACETYLSALICYLIC ACID) [Concomitant]
  12. DEURSIL [Concomitant]
  13. CITALOPRAM (CITALOPRAM) [Concomitant]

REACTIONS (2)
  - Urticaria [None]
  - Rash morbilliform [None]
